FAERS Safety Report 14390968 (Version 1)
Quarter: 2018Q1

REPORT INFORMATION
  Report Type: Spontaneous
  Country: CA (occurrence: CA)
  Receive Date: 20180116
  Receipt Date: 20180116
  Transmission Date: 20180509
  Serious: Yes (Death)
  Sender: FDA-Public Use
  Company Number: US-FRESENIUS KABI-FK201800451

PATIENT
  Age: 26 Year
  Sex: Female
  Weight: 60.45 kg

DRUGS (1)
  1. CHORIONIC GONADOTROPIN [Suspect]
     Active Substance: CHORIOGONADOTROPIN ALFA
     Indication: WEIGHT LOSS DIET
     Route: 050

REACTIONS (3)
  - Lethargy [Fatal]
  - Unresponsive to stimuli [Fatal]
  - Fatigue [Fatal]
